FAERS Safety Report 9803123 (Version 1)
Quarter: 2014Q1

REPORT INFORMATION
  Report Type: Spontaneous
  Country: US (occurrence: None)
  Receive Date: 20140106
  Receipt Date: 20140106
  Transmission Date: 20141002
  Serious: Yes (Other)
  Sender: FDA-Public Use
  Company Number: None

PATIENT
  Age: 61 Year
  Sex: Female
  Weight: 74.1 kg

DRUGS (1)
  1. VALSARTAN/HCTZ [Suspect]
     Indication: HYPERTENSION
     Dosage: ONE TAB 160/25  DAILY  ORAL
     Route: 048
     Dates: start: 20131001, end: 20131007

REACTIONS (2)
  - Chest pain [None]
  - Back pain [None]
